FAERS Safety Report 14273062 (Version 1)
Quarter: 2017Q4

REPORT INFORMATION
  Report Type: Spontaneous
  Country: GB (occurrence: GB)
  Receive Date: 20171212
  Receipt Date: 20171212
  Transmission Date: 20180321
  Serious: Yes (Other)
  Sender: FDA-Public Use
  Company Number: GB-JNJFOC-20171209825

PATIENT
  Age: 20 Year
  Sex: Male

DRUGS (2)
  1. TINZAPARIN [Suspect]
     Active Substance: TINZAPARIN
     Indication: PULMONARY EMBOLISM
     Route: 065
  2. XARELTO [Suspect]
     Active Substance: RIVAROXABAN
     Indication: PULMONARY EMBOLISM
     Route: 048

REACTIONS (6)
  - Blood pressure decreased [Unknown]
  - Malaise [Unknown]
  - Contraindicated product administered [Unknown]
  - Pallor [Unknown]
  - Hepatic haemorrhage [Unknown]
  - Tachycardia [Unknown]

NARRATIVE: CASE EVENT DATE: 20170508
